FAERS Safety Report 20449290 (Version 1)
Quarter: 2022Q1

REPORT INFORMATION
  Report Type: Report from Study
  Country: CA (occurrence: CA)
  Receive Date: 20220209
  Receipt Date: 20220209
  Transmission Date: 20220423
  Serious: Yes (Other)
  Sender: FDA-Public Use
  Company Number: CA-BoehringerIngelheim-2021-BI-136446

PATIENT
  Age: 75 Year
  Sex: Male

DRUGS (2)
  1. OFEV [Suspect]
     Active Substance: NINTEDANIB
     Indication: Idiopathic pulmonary fibrosis
     Route: 048
     Dates: start: 20210310
  2. OFEV [Suspect]
     Active Substance: NINTEDANIB
     Route: 048
     Dates: end: 20220203

REACTIONS (7)
  - Near death experience [Unknown]
  - Limb injury [Not Recovered/Not Resolved]
  - Fall [Not Recovered/Not Resolved]
  - Treatment noncompliance [Not Recovered/Not Resolved]
  - Nephrolithiasis [Not Recovered/Not Resolved]
  - Diarrhoea [Recovering/Resolving]
  - Fatigue [Recovering/Resolving]

NARRATIVE: CASE EVENT DATE: 20210101
